FAERS Safety Report 4306304-5 (Version None)
Quarter: 2004Q1

REPORT INFORMATION
  Report Type: 
  Country: None (occurrence: None)
  Receive Date: 20040225
  Receipt Date: 20030513
  Transmission Date: 20041129
  Serious: Yes (Hospitalization)
  Sender: FDA-Public Use
  Company Number: US-BRISTOL-MYERS SQUIBB COMPANY-12275301

PATIENT
  Age: 71 Year
  Sex: Male
  Weight: 118 kg

DRUGS (4)
  1. EXCEDRIN (MIGRAINE) [Suspect]
     Indication: ARTHRALGIA
     Dosage: FOUR TO FIVE YEARS AGO
     Route: 048
  2. EXCEDRIN (MIGRAINE) [Suspect]
     Indication: EAR INFECTION
     Dosage: FOUR TO FIVE YEARS AGO
     Route: 048
  3. IBUPROFEN [Suspect]
     Indication: ARTHRALGIA
     Dosage: FOUR TO FIVE YEARS AGO
     Route: 048
  4. IBUPROFEN [Suspect]
     Indication: EAR INFECTION
     Dosage: FOUR TO FIVE YEARS AGO
     Route: 048

REACTIONS (3)
  - GASTRIC HAEMORRHAGE [None]
  - HAEMATOCHEZIA [None]
  - LOSS OF CONSCIOUSNESS [None]
